FAERS Safety Report 17957412 (Version 6)
Quarter: 2022Q2

REPORT INFORMATION
  Report Type: Spontaneous
  Country: JP (occurrence: JP)
  Receive Date: 20200629
  Receipt Date: 20220601
  Transmission Date: 20220721
  Serious: Yes (Death, Hospitalization)
  Sender: FDA-Public Use
  Company Number: JP-ELI_LILLY_AND_COMPANY-JP202006011657

PATIENT
  Age: 75 Year
  Sex: Male
  Weight: 40 kg

DRUGS (26)
  1. ADCIRCA [Suspect]
     Active Substance: TADALAFIL
     Indication: Pulmonary hypertension
     Dosage: 40 MG, UNKNOWN
     Route: 065
     Dates: start: 20180605, end: 20210422
  2. ADCIRCA [Suspect]
     Active Substance: TADALAFIL
     Indication: Pulmonary arterial hypertension
  3. UPTRAVI [Suspect]
     Active Substance: SELEXIPAG
     Indication: Pulmonary hypertension
     Dosage: 0.2 MG, BID
     Route: 048
     Dates: start: 20170804, end: 20170817
  4. UPTRAVI [Suspect]
     Active Substance: SELEXIPAG
     Indication: Pulmonary arterial hypertension
     Dosage: 0.4 MG, BID
     Route: 048
     Dates: start: 20170818, end: 20170831
  5. UPTRAVI [Suspect]
     Active Substance: SELEXIPAG
     Dosage: 0.2 MG, BID
     Route: 048
     Dates: start: 20170901, end: 20171110
  6. UPTRAVI [Suspect]
     Active Substance: SELEXIPAG
     Dosage: 0.4 MG, BID
     Route: 048
     Dates: start: 20171111, end: 20180414
  7. UPTRAVI [Suspect]
     Active Substance: SELEXIPAG
     Dosage: 0.6 MG, BID
     Route: 048
     Dates: start: 20180415, end: 20180503
  8. UPTRAVI [Suspect]
     Active Substance: SELEXIPAG
     Dosage: 0.4 MG, BID
     Route: 048
     Dates: start: 20180504, end: 20180605
  9. UPTRAVI [Suspect]
     Active Substance: SELEXIPAG
     Dosage: 0.2 MG, BID
     Route: 048
     Dates: start: 20180605, end: 20190419
  10. UPTRAVI [Suspect]
     Active Substance: SELEXIPAG
     Dosage: 0.8 MG, BID
     Route: 048
     Dates: start: 20190521, end: 20210422
  11. OPSUMIT [Concomitant]
     Active Substance: MACITENTAN
     Indication: Pulmonary hypertension
     Dosage: 10 MG, UNKNOWN
     Dates: start: 20180605, end: 20210422
  12. TRACLEER [Concomitant]
     Active Substance: BOSENTAN
     Indication: Pulmonary hypertension
     Dosage: 187.5 MG, UNKNOWN
     Route: 065
     Dates: start: 20120605
  13. REVATIO [Concomitant]
     Active Substance: SILDENAFIL CITRATE
     Indication: Pulmonary hypertension
     Dosage: 60 MG, UNKNOWN
     Route: 065
     Dates: start: 20120610
  14. ROZEREM [Concomitant]
     Active Substance: RAMELTEON
     Indication: Insomnia
     Dosage: 8 MG, UNKNOWN
     Route: 065
     Dates: start: 20120525, end: 20210422
  15. THEOPHYLLINE ANHYDROUS [Concomitant]
     Active Substance: THEOPHYLLINE ANHYDROUS
     Indication: Chronic obstructive pulmonary disease
     Dosage: 200 MG, UNKNOWN
     Route: 065
     Dates: start: 20120605, end: 20210422
  16. FLUTICASONE PROPIONATE\SALMETEROL XINAFOATE [Concomitant]
     Active Substance: FLUTICASONE PROPIONATE\SALMETEROL XINAFOATE
     Indication: Chronic obstructive pulmonary disease
     Dosage: 500 UG
     Dates: start: 20120605
  17. SPIRIVA [TIOTROPIUM BROMIDE] [Concomitant]
     Indication: Chronic obstructive pulmonary disease
     Dosage: 5 UG
     Dates: start: 20120605
  18. FUDOSTEINE [Concomitant]
     Active Substance: FUDOSTEINE
     Indication: Chronic obstructive pulmonary disease
     Dosage: 800 MG
     Dates: start: 20120622
  19. HERBALS [Concomitant]
     Active Substance: HERBALS
     Indication: Neuropathy peripheral
     Dosage: 7.5 G
     Dates: start: 20150306
  20. ALLOPURINOL [Concomitant]
     Active Substance: ALLOPURINOL
     Indication: Hyperuricaemia
     Dosage: 100 MG
     Dates: start: 20120605, end: 20190419
  21. FAMOTIDINE [Concomitant]
     Active Substance: FAMOTIDINE
     Indication: Chronic gastritis
     Dosage: 40 MG, UNKNOWN
     Route: 065
     Dates: start: 20120612, end: 20190419
  22. TULOBUTEROL [Concomitant]
     Active Substance: TULOBUTEROL
     Indication: Chronic obstructive pulmonary disease
     Dosage: 2 MG
     Dates: start: 20120612
  23. MIYA-BM [Concomitant]
     Active Substance: CLOSTRIDIUM BUTYRICUM SPORES STRAIN M-55
     Indication: Gastrointestinal motility disorder
     Dosage: 60 MG
     Dates: start: 20150109
  24. VITAMINS NOS [Concomitant]
     Active Substance: VITAMINS
     Indication: Peripheral arterial occlusive disease
     Dosage: 15 UG, UNKNOWN
     Dates: start: 20150925
  25. BROTIZOLAM [Concomitant]
     Active Substance: BROTIZOLAM
     Indication: Insomnia
     Dosage: 0.25 MG, UNKNOWN
     Route: 065
     Dates: start: 20180605, end: 20210422
  26. NEXIUM [ESOMEPRAZOLE MAGNESIUM TRIHYDRATE] [Concomitant]
     Indication: Chronic gastritis
     Dosage: 10 MG
     Dates: start: 20190521, end: 20210422

REACTIONS (2)
  - Pulmonary arterial hypertension [Fatal]
  - Pulmonary arterial hypertension [Recovered/Resolved]

NARRATIVE: CASE EVENT DATE: 20190419
